FAERS Safety Report 24054941 (Version 1)
Quarter: 2024Q3

REPORT INFORMATION
  Report Type: Report from Study
  Country: JP (occurrence: JP)
  Receive Date: 20240705
  Receipt Date: 20240705
  Transmission Date: 20241017
  Serious: Yes (Death, Hospitalization)
  Sender: JOHNSON AND JOHNSON
  Company Number: JP-JNJFOC-20240712519

PATIENT
  Age: 65 Year
  Sex: Male

DRUGS (16)
  1. BOSENTAN [Suspect]
     Active Substance: BOSENTAN
     Indication: Scleroderma renal crisis
     Route: 048
     Dates: start: 20220201, end: 20220415
  2. SPIRONOLACTONE [Suspect]
     Active Substance: SPIRONOLACTONE
     Indication: Chronic kidney disease
     Route: 048
     Dates: start: 20220310, end: 20220415
  3. AZOSEMIDE [Suspect]
     Active Substance: AZOSEMIDE
     Indication: Chronic kidney disease
     Route: 048
     Dates: start: 20220306, end: 20220415
  4. ENALAPRIL [Suspect]
     Active Substance: ENALAPRIL
     Indication: Hypertension
     Route: 048
     Dates: start: 20211108, end: 20220305
  5. ENALAPRIL [Suspect]
     Active Substance: ENALAPRIL
     Route: 048
     Dates: start: 20220306, end: 20220415
  6. DOXAZOSIN [Concomitant]
     Active Substance: DOXAZOSIN MESYLATE
     Indication: Hypertension
     Route: 048
     Dates: start: 20220201, end: 20220305
  7. HERBALS [Concomitant]
     Active Substance: HERBALS
     Indication: Intestinal pseudo-obstruction
     Route: 048
     Dates: start: 20210727, end: 20220415
  8. AMLODINE [AMLODIPINE] [Concomitant]
     Indication: Hypertension
     Route: 048
     Dates: start: 20211011, end: 20220305
  9. OFEV [Concomitant]
     Active Substance: NINTEDANIB
     Indication: Interstitial lung disease
     Route: 048
     Dates: start: 20211108, end: 20220408
  10. MYCOPHENOLATE MOFETIL [Concomitant]
     Active Substance: MYCOPHENOLATE MOFETIL
     Indication: Systemic scleroderma
     Route: 048
     Dates: start: 20220104, end: 20220408
  11. METOCLOPRAMIDE [Concomitant]
     Active Substance: METOCLOPRAMIDE
     Indication: Vomiting
     Dosage: P.R.N
     Route: 048
     Dates: start: 20220201, end: 20220422
  12. VONOPRAZAN FUMARATE [Concomitant]
     Active Substance: VONOPRAZAN FUMARATE
     Indication: Gastrooesophageal reflux disease
     Route: 048
     Dates: start: 20220306, end: 20220422
  13. FAMOTIDINE [Concomitant]
     Active Substance: FAMOTIDINE
     Indication: Gastritis
     Route: 048
     Dates: start: 20210722, end: 20220305
  14. FAMOTIDINE [Concomitant]
     Active Substance: FAMOTIDINE
     Indication: Gastrooesophageal reflux disease
  15. LOPERAMIDE HYDROCHLORIDE [Concomitant]
     Active Substance: LOPERAMIDE HYDROCHLORIDE
     Indication: Diarrhoea
     Route: 048
     Dates: start: 20210718, end: 20220415
  16. FUROSEMIDE [Concomitant]
     Active Substance: FUROSEMIDE
     Indication: Chronic kidney disease
     Route: 042
     Dates: start: 20220305, end: 20220305

REACTIONS (4)
  - Anaemia [Fatal]
  - Hypotension [Fatal]
  - Multiple organ dysfunction syndrome [Fatal]
  - Off label use [Unknown]

NARRATIVE: CASE EVENT DATE: 20220201
